FAERS Safety Report 11404421 (Version 5)
Quarter: 2016Q1

REPORT INFORMATION
  Report Type: Spontaneous
  Country: US (occurrence: US)
  Receive Date: 20150821
  Receipt Date: 20160314
  Transmission Date: 20160525
  Serious: Yes (Hospitalization, Other)
  Sender: FDA-Public Use
  Company Number: US-PFIZER INC-2015272345

PATIENT
  Age: 65 Year
  Sex: Male
  Weight: 113 kg

DRUGS (12)
  1. INLYTA [Suspect]
     Active Substance: AXITINIB
     Indication: RENAL CANCER
     Dosage: 5 MG, 2X/DAY (TAKEN EVERY 12 HOURS)
     Dates: start: 2011, end: 201510
  2. INLYTA [Suspect]
     Active Substance: AXITINIB
     Dosage: 3 MG, 2X/DAY
     Dates: end: 20160226
  3. FERREX [Concomitant]
     Indication: ANAEMIA
     Dosage: 150 MG, 1X/DAY
     Route: 048
  4. VITAMIN D [Concomitant]
     Active Substance: CHOLECALCIFEROL
     Indication: THYROID DISORDER
     Dosage: 125 MG, WEEKLY
  5. HYDROCORTISONE. [Concomitant]
     Active Substance: HYDROCORTISONE
     Dosage: 10 MG, 2X/DAY (10MG TABLET ONCE IN MORNING AND ONCE IN THE EVENING BY MOUTH)
     Route: 048
  6. LEVOTHYROXINE. [Concomitant]
     Active Substance: LEVOTHYROXINE
     Dosage: 75 MG, 1X/DAY (75MG PILL ONE BEFORE BREAKFAST)
  7. INLYTA [Suspect]
     Active Substance: AXITINIB
     Dosage: 5 MG, 2X/DAY(TAKEN EVERY 12 HOURS)
     Dates: start: 2015
  8. INLYTA [Suspect]
     Active Substance: AXITINIB
     Dosage: 5 MG, 1X/DAY
  9. INLYTA [Suspect]
     Active Substance: AXITINIB
     Dosage: 5 MG, 2X/DAY (TAKEN EVERY 12 HOURS)
     Route: 048
     Dates: start: 201503
  10. BUMETANIDE. [Concomitant]
     Active Substance: BUMETANIDE
     Dosage: 0.5 MG, 1X/DAY
     Route: 048
  11. CARVEDILOL. [Concomitant]
     Active Substance: CARVEDILOL
     Dosage: 6.5 MG, 2X/DAY (6.5MG TABLET ONCE IN MORNING AND ONCE IN THE EVENING BY MOUTH)
     Route: 048
  12. OMEPRAZOLE. [Concomitant]
     Active Substance: OMEPRAZOLE
     Dosage: 20 MG, 1X/DAY
     Route: 048

REACTIONS (14)
  - Acute kidney injury [Not Recovered/Not Resolved]
  - Diarrhoea [Not Recovered/Not Resolved]
  - Head injury [Unknown]
  - Dehydration [Recovered/Resolved]
  - Blood pressure decreased [Not Recovered/Not Resolved]
  - Viral infection [Unknown]
  - Disease progression [Unknown]
  - Dizziness [Unknown]
  - Blister [Recovering/Resolving]
  - Dysphonia [Recovering/Resolving]
  - Headache [Unknown]
  - Renal cancer [Unknown]
  - Tongue blistering [Recovering/Resolving]
  - Fall [Recovered/Resolved]

NARRATIVE: CASE EVENT DATE: 201510
